FAERS Safety Report 16468298 (Version 1)
Quarter: 2019Q2

REPORT INFORMATION
  Report Type: Spontaneous
  Country: US (occurrence: US)
  Receive Date: 20190624
  Receipt Date: 20190624
  Transmission Date: 20190711
  Serious: Yes (Hospitalization)
  Sender: FDA-Public Use
  Company Number: US-ELI_LILLY_AND_COMPANY-US201906010210

PATIENT
  Sex: Male

DRUGS (4)
  1. HUMALOG [Concomitant]
     Active Substance: INSULIN LISPRO
     Indication: TYPE 1 DIABETES MELLITUS
     Dosage: 6 U, EACH MORNING
  2. HUMALOG [Concomitant]
     Active Substance: INSULIN LISPRO
     Dosage: 16 U, DAILY (NOON)
  3. BASAGLAR [Suspect]
     Active Substance: INSULIN GLARGINE
     Indication: TYPE 1 DIABETES MELLITUS
     Dosage: 10 U, DAILY (AT NIGHT)
     Route: 058
     Dates: start: 2016
  4. HUMALOG [Concomitant]
     Active Substance: INSULIN LISPRO
     Dosage: 12 U, EACH EVENING

REACTIONS (5)
  - Weight decreased [Recovering/Resolving]
  - Foot fracture [Recovering/Resolving]
  - Hypoacusis [Not Recovered/Not Resolved]
  - Malaise [Recovered/Resolved]
  - Epistaxis [Recovered/Resolved]

NARRATIVE: CASE EVENT DATE: 201902
